FAERS Safety Report 18603764 (Version 1)
Quarter: 2020Q4

REPORT INFORMATION
  Report Type: Spontaneous
  Country: US (occurrence: US)
  Receive Date: 20201211
  Receipt Date: 20201211
  Transmission Date: 20210114
  Serious: No
  Sender: FDA-Public Use
  Company Number: US-DRREDDYS-USA/USA/20/0129605

PATIENT
  Age: 82 Year
  Sex: Male
  Weight: 90 kg

DRUGS (2)
  1. SUMATRIPTAN INJECTION USP, 6 MG/0.5 ML [Suspect]
     Active Substance: SUMATRIPTAN
     Indication: MIGRAINE
     Dosage: SUMATRIPTAN SUCCINATE INJECTION 6 MG/0.5 ML
     Route: 058
  2. SUMATRIPTAN INJECTION USP, 6 MG/0.5 ML [Suspect]
     Active Substance: SUMATRIPTAN
     Dosage: SUMATRIPTAN SUCCINATE INJECTION 6 MG/0.5 ML
     Route: 058

REACTIONS (4)
  - Injection site injury [Unknown]
  - Drug ineffective [Unknown]
  - Product quality issue [Unknown]
  - Product dose omission issue [Unknown]
